FAERS Safety Report 25084998 (Version 1)
Quarter: 2025Q1

REPORT INFORMATION
  Report Type: Spontaneous
  Country: CN (occurrence: CN)
  Receive Date: 20250317
  Receipt Date: 20250317
  Transmission Date: 20250409
  Serious: Yes (Other)
  Sender: BAYER HEALTHCARE PHARMACEUTICALS INC.
  Company Number: CN-BAYER-2025A036286

PATIENT
  Age: 71 Year
  Sex: Female
  Weight: 49 kg

DRUGS (1)
  1. GLUCOBAY [Suspect]
     Active Substance: ACARBOSE
     Indication: Type 2 diabetes mellitus
     Dosage: 100 MG, TID
     Route: 048
     Dates: start: 20250306, end: 20250309

REACTIONS (2)
  - Abdominal distension [Recovering/Resolving]
  - Flatulence [Recovered/Resolved]

NARRATIVE: CASE EVENT DATE: 20250309
